FAERS Safety Report 21013332 (Version 6)
Quarter: 2024Q4

REPORT INFORMATION
  Report Type: Spontaneous
  Country: US (occurrence: US)
  Receive Date: 20220627
  Receipt Date: 20241218
  Transmission Date: 20250115
  Serious: No
  Sender: SANOFI AVENTIS
  Company Number: US-SA-SAC20220621000661

PATIENT
  Age: 51 Year
  Sex: Female

DRUGS (77)
  1. DUPIXENT [Suspect]
     Active Substance: DUPILUMAB
     Indication: Asthma
     Dosage: 300 MG, QOW
     Route: 058
     Dates: start: 20210423
  2. ATORVASTATIN [Concomitant]
     Active Substance: ATORVASTATIN
     Dosage: UNK
  3. AZITHROMYCIN [Concomitant]
     Active Substance: AZITHROMYCIN
     Dosage: UNK
  4. BENZONATATE [Concomitant]
     Active Substance: BENZONATATE
     Dosage: UNK
  5. BUSPIRONE [Concomitant]
     Active Substance: BUSPIRONE HYDROCHLORIDE
     Dosage: UNK
  6. CLONAZEPAM [Concomitant]
     Active Substance: CLONAZEPAM
     Dosage: UNK
  7. CODEINE [Concomitant]
     Active Substance: CODEINE
     Indication: Cough
     Dosage: 2 MG
  8. CHOLESTYRAMINE [Concomitant]
     Active Substance: CHOLESTYRAMINE
  9. DICLOFENAC [Concomitant]
     Active Substance: DICLOFENAC
     Dosage: UNK
  10. DICLOFENAC [Concomitant]
     Active Substance: DICLOFENAC
  11. DULOXETINE [Concomitant]
     Active Substance: DULOXETINE
     Dosage: 30 MG
  12. DULOXETINE [Concomitant]
     Active Substance: DULOXETINE
     Dosage: 60 MG
  13. FAMOTIDINE [Concomitant]
     Active Substance: FAMOTIDINE
     Dosage: 150 MG
  14. FLUCONAZOLE [Concomitant]
     Active Substance: FLUCONAZOLE
     Dosage: UNK
  15. INCRUSE ELLIPTA [Concomitant]
     Active Substance: UMECLIDINIUM BROMIDE
     Dosage: 62.5 MCG
  16. DIETHYLPROPION HYDROCHLORIDE [Concomitant]
     Active Substance: DIETHYLPROPION HYDROCHLORIDE
     Dosage: 75 MG
  17. LAMOTRIGINE [Concomitant]
     Active Substance: LAMOTRIGINE
     Dosage: UNK
  18. LOSARTAN POTASSIUM [Concomitant]
     Active Substance: LOSARTAN POTASSIUM
     Dosage: UNK
  19. LYRICA [Concomitant]
     Active Substance: PREGABALIN
     Dosage: UNK
  20. MONTELUKAST SODIUM [Concomitant]
     Active Substance: MONTELUKAST\MONTELUKAST SODIUM
     Dosage: UNK
  21. MUCINEX [Concomitant]
     Active Substance: GUAIFENESIN
     Dosage: UNK
  22. PREDNISONE [Concomitant]
     Active Substance: PREDNISONE
     Dosage: 10 MG
  23. PREDNISONE [Concomitant]
     Active Substance: PREDNISONE
     Dosage: 20 MG
  24. PREDNISONE [Concomitant]
     Active Substance: PREDNISONE
     Dosage: 50 MG
  25. PREGABALIN [Concomitant]
     Active Substance: PREGABALIN
     Dosage: 150 MG
  26. PREGABALIN [Concomitant]
     Active Substance: PREGABALIN
     Dosage: 200 MG
  27. SERTRALINE [Concomitant]
     Active Substance: SERTRALINE HYDROCHLORIDE
     Dosage: 50 MG
  28. TRAMADOL HCL [Concomitant]
     Active Substance: TRAMADOL HYDROCHLORIDE
     Dosage: UNK
  29. TRAZODONE [Concomitant]
     Active Substance: TRAZODONE HYDROCHLORIDE
     Dosage: UNK
  30. TRETINOIN [Concomitant]
     Active Substance: TRETINOIN
     Dosage: UNK %
  31. METHOCARBAMOL [Concomitant]
     Active Substance: METHOCARBAMOL
  32. METHYLPREDNISOLONE ACETATE [Concomitant]
     Active Substance: METHYLPREDNISOLONE ACETATE
     Dosage: UNK
  33. CORTICOSTEROID NOS [Concomitant]
     Active Substance: CORTICOSTEROID NOS
     Dosage: UNK
  34. KENALOG [Concomitant]
     Active Substance: TRIAMCINOLONE ACETONIDE
     Dosage: UNK
  35. ALBUTEROL SULFATE [Concomitant]
     Active Substance: ALBUTEROL SULFATE
     Indication: Asthma
     Dosage: UNK
  36. BUSPIRONE HCL [Concomitant]
     Active Substance: BUSPIRONE HYDROCHLORIDE
  37. ESTRADIOL [Concomitant]
     Active Substance: ESTRADIOL
  38. ROPINIROLE [Concomitant]
     Active Substance: ROPINIROLE
  39. MONTELUKAST [Concomitant]
     Active Substance: MONTELUKAST SODIUM
  40. AMFEPRAMONE [Concomitant]
     Active Substance: DIETHYLPROPION
  41. ESOMEPRAZOLE MAGNESIUM [Concomitant]
     Active Substance: ESOMEPRAZOLE MAGNESIUM
  42. BUDESONIDE [Concomitant]
     Active Substance: BUDESONIDE
  43. LEVALBUTEROL [Concomitant]
     Active Substance: LEVALBUTEROL
     Dosage: 50MG
  44. LOSARTAN [Concomitant]
     Active Substance: LOSARTAN
     Indication: Hypertension
     Dosage: 50MG
  45. TRAMADOL [Concomitant]
     Active Substance: TRAMADOL
     Dosage: 50MG
  46. INTRINSIC FACTOR [Concomitant]
     Active Substance: INTRINSIC FACTOR
  47. UNSPECIFIED INGREDIENT [Concomitant]
     Active Substance: UNSPECIFIED INGREDIENT
  48. CODEINE\GUAIFENESIN [Concomitant]
     Active Substance: CODEINE\GUAIFENESIN
  49. CYCLOBENZAPRINE [Concomitant]
     Active Substance: CYCLOBENZAPRINE
     Dosage: UNK
  50. ONDANSETRON [Concomitant]
     Active Substance: ONDANSETRON
     Dosage: UNK
  51. ZOLOFT [Concomitant]
     Active Substance: SERTRALINE HYDROCHLORIDE
     Dosage: UNK
  52. WELLBUTRIN [Concomitant]
     Active Substance: BUPROPION HYDROCHLORIDE
     Dosage: UNK
  53. TRIAMCINOLONE [Concomitant]
     Active Substance: TRIAMCINOLONE
     Dosage: UNK
  54. DEXAMETHASONE\TOBRAMYCIN [Concomitant]
     Active Substance: DEXAMETHASONE\TOBRAMYCIN
     Dosage: UNK
  55. SPIRIVA [Concomitant]
     Active Substance: TIOTROPIUM BROMIDE MONOHYDRATE
     Dosage: UNK
  56. LEVALBUTEROL HYDROCHLORIDE [Concomitant]
     Active Substance: LEVALBUTEROL HYDROCHLORIDE
     Dosage: UNK
  57. LEVALBUTEROL [Concomitant]
     Active Substance: LEVALBUTEROL
     Dosage: UNK
  58. LEFLUNOMIDE [Concomitant]
     Active Substance: LEFLUNOMIDE
     Dosage: UNK
  59. KETOROLAC [Concomitant]
     Active Substance: KETOROLAC TROMETHAMINE
     Dosage: UNK
  60. KETOCONAZOLE [Concomitant]
     Active Substance: KETOCONAZOLE
  61. DEXAMETHASONE [Concomitant]
     Active Substance: DEXAMETHASONE
     Dosage: UNK
  62. POLYETHYLENE GLYCOL 3350 [Concomitant]
     Active Substance: POLYETHYLENE GLYCOL 3350
     Dosage: UNK
  63. PHENTERMINE [Concomitant]
     Active Substance: PHENTERMINE\PHENTERMINE HYDROCHLORIDE
     Dosage: UNK
  64. AMMONIUM LACTATE [Concomitant]
     Active Substance: AMMONIUM LACTATE
     Dosage: UNK
  65. AMOXICILLIN\CLAVULANIC ACID [Concomitant]
     Active Substance: AMOXICILLIN\CLAVULANIC ACID
     Dosage: UNK
  66. AMOXICILLIN [Concomitant]
     Active Substance: AMOXICILLIN
     Dosage: UNK
  67. AZELASTINE [Concomitant]
     Active Substance: AZELASTINE
     Dosage: UNK
  68. IPRATROPIUM [Concomitant]
     Active Substance: IPRATROPIUM
     Dosage: UNK
  69. LIDOCAINE [Concomitant]
     Active Substance: LIDOCAINE
     Dosage: UNK
  70. METHOTREXATE SODIUM [Concomitant]
     Active Substance: METHOTREXATE SODIUM
  71. MODERNA COVID-19 VACCINE [Concomitant]
     Active Substance: ELASOMERAN
     Dosage: UNK
  72. CEPHALEXIN [Concomitant]
     Active Substance: CEPHALEXIN
     Dosage: UNK
  73. CYANOCOBALAMIN [Concomitant]
     Active Substance: CYANOCOBALAMIN
     Dosage: UNK
  74. FOLIC ACID [Concomitant]
     Active Substance: FOLIC ACID
  75. GABAPENTIN [Concomitant]
     Active Substance: GABAPENTIN
     Dosage: UNK
  76. FLUTICASONE [Concomitant]
     Active Substance: FLUTICASONE
     Dosage: UNK
  77. ACETAMINOPHEN\HYDROCODONE [Concomitant]
     Active Substance: ACETAMINOPHEN\HYDROCODONE
     Dosage: UNK

REACTIONS (5)
  - Sleep disorder due to a general medical condition [Unknown]
  - Impaired quality of life [Not Recovered/Not Resolved]
  - Sinusitis [Not Recovered/Not Resolved]
  - Asthma [Not Recovered/Not Resolved]
  - Drug ineffective [Unknown]
